FAERS Safety Report 26000422 (Version 1)
Quarter: 2025Q4

REPORT INFORMATION
  Report Type: Spontaneous
  Country: US (occurrence: US)
  Receive Date: 20251105
  Receipt Date: 20251105
  Transmission Date: 20260118
  Serious: No
  Sender: ANI
  Company Number: US-ANIPHARMA-2025-US-038335

PATIENT
  Age: 79 Year
  Sex: Female
  Weight: 83.01 kg

DRUGS (1)
  1. CORTICOTROPIN [Suspect]
     Active Substance: CORTICOTROPIN
     Indication: Rheumatoid arthritis
     Route: 058
     Dates: start: 20250804, end: 20250811

REACTIONS (7)
  - Dyspnoea [Unknown]
  - Anxiety [Unknown]
  - Dizziness [Unknown]
  - Increased appetite [Unknown]
  - Insomnia [Unknown]
  - Asthenia [Unknown]
  - Depression [Unknown]

NARRATIVE: CASE EVENT DATE: 20250804
